FAERS Safety Report 13600335 (Version 4)
Quarter: 2017Q3

REPORT INFORMATION
  Report Type: Spontaneous
  Country: US (occurrence: US)
  Receive Date: 20170601
  Receipt Date: 20170711
  Transmission Date: 20171127
  Serious: No
  Sender: FDA-Public Use
  Company Number: US-PFIZER INC-2017234565

PATIENT
  Age: 55 Year
  Sex: Female

DRUGS (1)
  1. IBRANCE [Suspect]
     Active Substance: PALBOCICLIB
     Indication: NEOPLASM MALIGNANT
     Dosage: 125 MG, CYCLIC (1 CAPSULE, EVERY DAY FOR 21 DAYS EVERY 28 DAYS)
     Route: 048
     Dates: start: 20170511

REACTIONS (4)
  - Full blood count decreased [Unknown]
  - Rash [Unknown]
  - White blood cell count decreased [Unknown]
  - Influenza like illness [Unknown]
